FAERS Safety Report 9645327 (Version 4)
Quarter: 2014Q4

REPORT INFORMATION
  Report Type: Report from Study
  Country: US (occurrence: US)
  Receive Date: 20131025
  Receipt Date: 20141111
  Transmission Date: 20150529
  Serious: Yes (Death, Disabling, Other)
  Sender: FDA-Public Use
  Company Number: US-SA-2013SA107773

PATIENT
  Age: 36 Year
  Sex: Female

DRUGS (1)
  1. AUBAGIO [Suspect]
     Active Substance: TERIFLUNOMIDE
     Indication: MULTIPLE SCLEROSIS
     Route: 048
     Dates: start: 20130918, end: 201311

REACTIONS (6)
  - Malaise [Unknown]
  - Sepsis [Fatal]
  - Decubitus ulcer [Unknown]
  - Bedridden [Unknown]
  - Musculoskeletal stiffness [Unknown]
  - Mobility decreased [Unknown]
